FAERS Safety Report 6955935-2 (Version None)
Quarter: 2010Q3

REPORT INFORMATION
  Report Type: 
  Country: None (occurrence: None)
  Receive Date: 20100826
  Receipt Date: 20100826
  Transmission Date: 20110219
  Serious: Yes (Other)
  Sender: FDA-Public Use
  Company Number: None

PATIENT
  Sex: Female
  Weight: 46.2669 kg

DRUGS (2)
  1. MEDROXPROGESTERONE ACETATE 150MG GREENSTONE [Suspect]
     Indication: CONTRACEPTION
     Dates: start: 20100505, end: 20100722
  2. MEDROXPROGESTERONE ACETATE [Suspect]
     Dates: start: 20100722

REACTIONS (10)
  - ARTHRALGIA [None]
  - CONTUSION [None]
  - GAIT DISTURBANCE [None]
  - JOINT LOCK [None]
  - JOINT SWELLING [None]
  - LYMPH NODE PAIN [None]
  - LYMPHADENITIS [None]
  - LYMPHADENOPATHY [None]
  - PHOTOSENSITIVITY REACTION [None]
  - RASH MACULO-PAPULAR [None]
